FAERS Safety Report 7453586-7 (Version None)
Quarter: 2011Q2

REPORT INFORMATION
  Report Type: 
  Country: None (occurrence: None)
  Receive Date: 20110502
  Receipt Date: 20101124
  Transmission Date: 20111010
  Serious: Yes (Hospitalization, Other)
  Sender: FDA-Public Use
  Company Number: US-BAYER-201034341NA

PATIENT
  Age: 37 Year
  Sex: Female
  Weight: 88 kg

DRUGS (10)
  1. PAROXETINE HCL [Concomitant]
     Dosage: 20 MG, UNK
     Route: 048
  2. ATIVAN [Concomitant]
  3. METOPROLOL TARTRATE [Concomitant]
     Dosage: 25 MG, UNK
     Route: 048
  4. LORAZEPAM [Concomitant]
     Dosage: 0.5 MG, UNK
     Route: 048
     Dates: start: 20090101
  5. DROSPIRENONE AND ETHINYL ESTRADIOL [Suspect]
     Dosage: UNK
     Dates: start: 20100601
  6. LITHIUM CARBONATE [Suspect]
     Dosage: 300 MG, UNK
     Route: 048
     Dates: start: 20070801
  7. TRAZODONE [Concomitant]
     Dosage: 50 MG, UNK
     Route: 048
     Dates: start: 20090101
  8. YAZ [Suspect]
     Indication: MENSTRUAL CYCLE MANAGEMENT
     Dosage: UNK UNK, QD
     Route: 048
     Dates: start: 20090102, end: 20100720
  9. LITHIUM CARBONATE [Concomitant]
  10. BUPROPION HCL [Concomitant]
     Dosage: 150 MG, UNK
     Route: 048

REACTIONS (5)
  - ATAXIA [None]
  - WALLENBERG SYNDROME [None]
  - CEREBROVASCULAR ACCIDENT [None]
  - NYSTAGMUS [None]
  - VERTIGO [None]
